FAERS Safety Report 22612944 (Version 1)
Quarter: 2023Q2

REPORT INFORMATION
  Report Type: Spontaneous
  Country: US (occurrence: US)
  Receive Date: 20230618
  Receipt Date: 20230618
  Transmission Date: 20230722
  Serious: No
  Sender: FDA-Public Use
  Company Number: US-ELI_LILLY_AND_COMPANY-US202306008413

PATIENT
  Sex: Male

DRUGS (1)
  1. MOUNJARO [Suspect]
     Active Substance: TIRZEPATIDE
     Indication: Diabetes mellitus
     Dosage: 7.5 MG, UNKNOWN
     Route: 065
     Dates: start: 202210

REACTIONS (6)
  - Localised infection [Unknown]
  - Peripheral swelling [Unknown]
  - Illness [Unknown]
  - Disturbance in attention [Unknown]
  - Asthenia [Unknown]
  - Malaise [Unknown]
